FAERS Safety Report 5422893-1 (Version None)
Quarter: 2007Q3

REPORT INFORMATION
  Report Type: 
  Country: None (occurrence: None)
  Receive Date: 20070820
  Receipt Date: 20070809
  Transmission Date: 20080115
  Serious: Yes (Hospitalization)
  Sender: FDA-Public Use
  Company Number: GXKR2007CH06845

PATIENT
  Age: 84 Year
  Sex: Female
  Weight: 60 kg

DRUGS (14)
  1. TORSEMIDE [Suspect]
     Indication: CARDIAC FAILURE CONGESTIVE
     Dosage: 5 MG, QD, ORAL
     Route: 048
     Dates: start: 20070227, end: 20070307
  2. FLUOXETINE [Suspect]
     Indication: DEPRESSION
     Dosage: 20 MG, QD, ORAL
     Route: 048
     Dates: start: 20070221, end: 20070423
  3. LASIX [Suspect]
     Indication: CARDIAC FAILURE CONGESTIVE
     Dosage: 20 MG, QD, ORAL, 40 MG, ONCE/SINGLE INTRAVENOUE
     Route: 048
     Dates: start: 20070322, end: 20070322
  4. LASIX [Suspect]
     Indication: CARDIAC FAILURE CONGESTIVE
     Dosage: 20 MG, QD, ORAL, 40 MG, ONCE/SINGLE INTRAVENOUE
     Route: 048
     Dates: start: 20070307, end: 20070323
  5. NEXIUM [Suspect]
     Dosage: 20 MG, QD, ORAL
     Route: 048
     Dates: start: 20070216, end: 20070323
  6. CLEXANE(ENOXAPARIN SODIUM, HEPARIN FRACTION , SODIUM SALT) SOLUTION FO [Suspect]
     Dosage: 100 MG/ML, QD, SUBCUTANEOUS
     Route: 058
     Dates: start: 20070215, end: 20070302
  7. TOREM (TORASEMIDE) [Concomitant]
  8. CARBIMAZOLE (CARBIMAZOLE) [Concomitant]
  9. LOPRESSOR [Concomitant]
  10. ARICEPT [Concomitant]
  11. ACETAMINOPHEN [Concomitant]
  12. LAXOBERON (SODIUM PICOSULFATE) [Concomitant]
  13. EPRIL (ENALAPRIL MALEATE) [Concomitant]
  14. LISINOPRIL W/HYDROCHLOROTHIAIDE (HYDROCHLOROTHIAZIDE, LISINOPRIL) [Concomitant]

REACTIONS (9)
  - CARDIAC FAILURE [None]
  - FLUID OVERLOAD [None]
  - GLOMERULONEPHRITIS [None]
  - HYPERTHYROIDISM [None]
  - LEUKOCYTOCLASTIC VASCULITIS [None]
  - NORMOCHROMIC NORMOCYTIC ANAEMIA [None]
  - RENAL FAILURE ACUTE [None]
  - TYPE III IMMUNE COMPLEX MEDIATED REACTION [None]
  - VASCULAR PURPURA [None]
